FAERS Safety Report 10362694 (Version 1)
Quarter: 2014Q1

REPORT INFORMATION
  Report Type: Spontaneous
  Country: US (occurrence: None)
  Receive Date: 20140306
  Receipt Date: 20140306
  Transmission Date: 20141002
  Serious: Yes (Other)
  Sender: FDA-Public Use
  Company Number: 163-21880-13060334

PATIENT
  Age: 61 Year
  Sex: Female

DRUGS (11)
  1. REVLIMID [Suspect]
     Indication: MYELODYSPLASTIC SYNDROME
     Route: 048
     Dates: start: 20130525, end: 20130526
  2. DURAGESIC (FENTANYL) (POULTICE OR PATCH) [Concomitant]
  3. HYDROCODONE ACET [Concomitant]
  4. TRAMADOL [Concomitant]
  5. CARISOPRODOL [Concomitant]
  6. LEVOTHYROXINE [Concomitant]
  7. ESTRADIOL [Concomitant]
  8. FUROSEMIDE [Concomitant]
  9. NEXIUM [Concomitant]
  10. FERROUS SULFATE (UNKNOWN) [Concomitant]
  11. MULTIVITAMIN (MULTIVITAMINS) (UNKNOWN) [Concomitant]

REACTIONS (2)
  - Periorbital oedema [None]
  - Pruritus [None]
